FAERS Safety Report 6688725-9 (Version None)
Quarter: 2010Q2

REPORT INFORMATION
  Report Type: 
  Country: None (occurrence: None)
  Receive Date: 20100420
  Receipt Date: 20100416
  Transmission Date: 20101027
  Serious: Yes (Disabling, Other)
  Sender: FDA-Public Use
  Company Number: A0855494A

PATIENT
  Age: 16 Year
  Sex: Female

DRUGS (2)
  1. SUMATRIPTAN SUCCINATE [Suspect]
     Indication: HEADACHE
     Dosage: 50MG SINGLE DOSE
     Route: 048
     Dates: start: 20100216, end: 20100216
  2. NO CONCURRENT MEDICATION [Concomitant]

REACTIONS (6)
  - APHASIA [None]
  - APHONIA [None]
  - CHEST PAIN [None]
  - DEPRESSION [None]
  - LARYNGITIS [None]
  - OROPHARYNGEAL PAIN [None]
